FAERS Safety Report 9248317 (Version 1)
Quarter: 2013Q2

REPORT INFORMATION
  Report Type: Spontaneous
  Country: US (occurrence: US)
  Receive Date: 20130423
  Receipt Date: 20130423
  Transmission Date: 20140414
  Serious: Yes (Death)
  Sender: FDA-Public Use
  Company Number: US-ELI_LILLY_AND_COMPANY-US201304005481

PATIENT
  Sex: 0

DRUGS (2)
  1. GEMCITABINE HYDROCHLORIDE [Suspect]
     Indication: HEAD AND NECK CANCER
     Dosage: 750 MG/M2, OTHER
  2. HYDROXYUREA [Concomitant]
     Dosage: 500 MG/M2, OTHER

REACTIONS (1)
  - Neutropenia [Fatal]
